FAERS Safety Report 9696790 (Version 2)
Quarter: 2013Q4

REPORT INFORMATION
  Report Type: Spontaneous
  Country: US (occurrence: US)
  Receive Date: 20131119
  Receipt Date: 20131119
  Transmission Date: 20140711
  Serious: No
  Sender: FDA-Public Use
  Company Number: US-GILEAD-2007-0014382

PATIENT
  Sex: Female
  Weight: 88.45 kg

DRUGS (12)
  1. LETAIRIS [Suspect]
     Indication: PULMONARY ARTERIAL HYPERTENSION
     Route: 048
     Dates: start: 20071016, end: 20071116
  2. PRAVACHOL [Concomitant]
     Route: 048
  3. NORVASC [Concomitant]
     Route: 048
  4. ATENOLOL [Concomitant]
     Route: 048
  5. ASPIRIN [Concomitant]
     Route: 048
  6. GLUCOSAMINE COMPLEX [Concomitant]
     Route: 048
  7. WOMENS TYLENOL [Concomitant]
     Dosage: 500/25 PO UD
     Route: 048
  8. MAXZIDE [Concomitant]
     Dosage: 75/50 PO UD
     Route: 048
  9. POTASSIUM CHLORIDE [Concomitant]
     Route: 048
  10. VITAMIN E [Concomitant]
     Route: 048
  11. COENZYME Q10 [Concomitant]
     Route: 048
  12. FISH OIL [Concomitant]

REACTIONS (1)
  - Cardiac disorder [Recovered/Resolved]
